FAERS Safety Report 7481143-5 (Version None)
Quarter: 2011Q2

REPORT INFORMATION
  Report Type: 
  Country: None (occurrence: None)
  Receive Date: 20110516
  Receipt Date: 20110511
  Transmission Date: 20111010
  Serious: Yes (Hospitalization)
  Sender: FDA-Public Use
  Company Number: FR-SANOFI-AVENTIS-2011SA000391

PATIENT
  Age: 72 Year
  Sex: Male
  Weight: 73 kg

DRUGS (10)
  1. MULTAQ [Suspect]
     Indication: ARRHYTHMIA
     Route: 048
     Dates: start: 20101130, end: 20101213
  2. VITAMINE C [Concomitant]
     Route: 065
  3. INSPRA [Suspect]
     Route: 048
     Dates: end: 20101213
  4. SERECOR [Concomitant]
     Route: 065
  5. OROCAL D(3) [Concomitant]
     Route: 065
  6. PREVISCAN [Concomitant]
     Route: 048
  7. CHONDROSULF [Concomitant]
     Route: 065
  8. ACETAMINOPHEN [Concomitant]
     Route: 065
  9. FLECAINIDE ACETATE [Concomitant]
     Route: 065
  10. DIFFU K [Concomitant]
     Route: 065

REACTIONS (6)
  - EOSINOPHILIA [None]
  - PYREXIA [None]
  - RASH MACULO-PAPULAR [None]
  - DRUG RASH WITH EOSINOPHILIA AND SYSTEMIC SYMPTOMS [None]
  - ENANTHEMA [None]
  - NEUTROPHILIA [None]
